FAERS Safety Report 8794653 (Version 1)
Quarter: 2012Q4

REPORT INFORMATION
  Report Type: 
  Country: US (occurrence: US)
  Receive Date: 20120917
  Receipt Date: 20120917
  Transmission Date: 20130627
  Serious: No
  Sender: FDA-Public Use
  Company Number: US-VERTEX PHARMACEUTICAL INC.-2012-019939

PATIENT
  Age: 54 Year
  Sex: Male
  Weight: 70.3 kg

DRUGS (5)
  1. INCIVEK [Suspect]
     Indication: HEPATITIS C
     Dosage: 750 mg, tid
     Route: 048
     Dates: start: 20120615, end: 20120817
  2. RIBAVIRIN [Concomitant]
     Indication: HEPATITIS C
     Dosage: 400 mg, bid
     Dates: start: 20120615, end: 20120817
  3. PEGASYS [Concomitant]
     Indication: HEPATITIS C
     Dosage: 180 ?g, UNK
     Route: 058
     Dates: start: 20120615, end: 20120817
  4. PROZAC [Concomitant]
     Indication: ATTENTION DEFICIT/HYPERACTIVITY DISORDER
  5. PROZAC [Concomitant]
     Indication: ANXIETY

REACTIONS (5)
  - Pain of skin [Not Recovered/Not Resolved]
  - Anger [Not Recovered/Not Resolved]
  - Rash generalised [Not Recovered/Not Resolved]
  - Pruritus [Not Recovered/Not Resolved]
  - Rash vesicular [Unknown]
